FAERS Safety Report 23176921 (Version 1)
Quarter: 2023Q4

REPORT INFORMATION
  Report Type: Spontaneous
  Country: US (occurrence: None)
  Receive Date: 20231113
  Receipt Date: 20231113
  Transmission Date: 20240110
  Serious: No
  Sender: FDA-Public Use
  Company Number: 2023A256885

PATIENT
  Age: 53 Year
  Sex: Female

DRUGS (1)
  1. FARXIGA [Suspect]
     Active Substance: DAPAGLIFLOZIN PROPANEDIOL
     Indication: Glomerular filtration rate decreased
     Dosage: 10.0MG UNKNOWN
     Route: 048
     Dates: start: 20220810

REACTIONS (1)
  - Malaise [Unknown]
